FAERS Safety Report 14183919 (Version 5)
Quarter: 2018Q3

REPORT INFORMATION
  Report Type: Spontaneous
  Country: US (occurrence: US)
  Receive Date: 20171113
  Receipt Date: 20180927
  Transmission Date: 20181010
  Serious: Yes (Hospitalization, Disabling, Other)
  Sender: FDA-Public Use
  Company Number: US-009507513-1711USA004424

PATIENT
  Sex: Female
  Weight: 76.19 kg

DRUGS (3)
  1. NUVARING [Suspect]
     Active Substance: ETHINYL ESTRADIOL\ETONOGESTREL
     Dosage: REMOVE OLD RING ON THE FIRST OF EVERY MONTH AND INSERT NEW ONE ON THE FIFTH OF EVERY MONTH
     Route: 067
     Dates: start: 20090227
  2. NUVARING [Suspect]
     Active Substance: ETHINYL ESTRADIOL\ETONOGESTREL
     Indication: CONTRACEPTION
     Dosage: 1 DF,  REMOVE OLD RING ON FIRST OF EVERY MONTH AND INSERT NEWONE ON THE FIFTH OF EVERY MONTH
     Route: 067
     Dates: start: 200606, end: 201412
  3. NUVARING [Suspect]
     Active Substance: ETHINYL ESTRADIOL\ETONOGESTREL
     Indication: MENSTRUATION IRREGULAR
     Dosage: REMOVE OLD RING ON THE FIRST OF EVERY MONTH AND INSERT NEW ONE ON THE FIFTH OF EVERY MONTH
     Route: 067
     Dates: start: 20080225

REACTIONS (31)
  - Pain in extremity [Not Recovered/Not Resolved]
  - Essential hypertension [Unknown]
  - Headache [Unknown]
  - Menometrorrhagia [Unknown]
  - Hyperlipidaemia [Unknown]
  - Depression [Unknown]
  - Off label use [Unknown]
  - Encephalomalacia [Unknown]
  - Arnold-Chiari malformation [Unknown]
  - Micturition urgency [Unknown]
  - Cerebral infarction [Unknown]
  - Palpitations [Unknown]
  - Mitral valve prolapse [Unknown]
  - Nasopharyngitis [Unknown]
  - Cognitive disorder [Unknown]
  - Inappropriate schedule of drug administration [Unknown]
  - Multiple sclerosis [Unknown]
  - Musculoskeletal pain [Unknown]
  - Coital bleeding [Unknown]
  - Swelling [Unknown]
  - Sinus tachycardia [Unknown]
  - Neck pain [Unknown]
  - Cerebrovascular accident [Recovering/Resolving]
  - Vitamin D decreased [Unknown]
  - Vertigo positional [Unknown]
  - Supraventricular tachycardia [Unknown]
  - Chest pain [Unknown]
  - Dizziness [Unknown]
  - Upper-airway cough syndrome [Unknown]
  - Menorrhagia [Unknown]
  - Incontinence [Unknown]

NARRATIVE: CASE EVENT DATE: 2007
